FAERS Safety Report 5881200-0 (Version None)
Quarter: 2008Q3

REPORT INFORMATION
  Report Type: 
  Country: None (occurrence: None)
  Receive Date: 20080912
  Receipt Date: 20080623
  Transmission Date: 20090109
  Serious: No
  Sender: FDA-Public Use
  Company Number: US-ABBOTT-08P-163-0459187-00

PATIENT
  Sex: Female

DRUGS (1)
  1. HUMIRA [Suspect]
     Indication: CROHN'S DISEASE
     Route: 058
     Dates: start: 20080616

REACTIONS (6)
  - ASTHENIA [None]
  - BACK PAIN [None]
  - CHILLS [None]
  - HEADACHE [None]
  - MUSCULAR WEAKNESS [None]
  - VISION BLURRED [None]
